FAERS Safety Report 8457100-9 (Version None)
Quarter: 2012Q2

REPORT INFORMATION
  Report Type: 
  Country: None (occurrence: None)
  Receive Date: 20120621
  Receipt Date: 20120614
  Transmission Date: 20120825
  Serious: Yes (Hospitalization, Other)
  Sender: FDA-Public Use
  Company Number: FR-UCBSA-059718

PATIENT
  Age: 54 Year
  Sex: Male

DRUGS (7)
  1. VIMPAT [Suspect]
     Dates: start: 20110301, end: 20120222
  2. VIMPAT [Suspect]
     Indication: EPILEPSY
     Dates: start: 20120223, end: 20120226
  3. KEPPRA [Suspect]
     Indication: EPILEPSY
     Route: 048
     Dates: start: 20120227, end: 20120228
  4. KEPPRA [Suspect]
     Dates: end: 20111201
  5. LEVETIRACETAM [Suspect]
     Indication: EPILEPSY
     Dosage: STRENGTH: 1000MG
     Route: 048
     Dates: start: 20111201, end: 20120225
  6. CLOBAZAM [Concomitant]
     Indication: PETIT MAL EPILEPSY
  7. PHENOBARBITAL TAB [Concomitant]
     Indication: PETIT MAL EPILEPSY

REACTIONS (2)
  - DRUG INEFFECTIVE [None]
  - STATUS EPILEPTICUS [None]
